FAERS Safety Report 8876679 (Version 1)
Quarter: 2012Q4

REPORT INFORMATION
  Report Type: 
  Country: US (occurrence: US)
  Receive Date: 20121023
  Receipt Date: 20121023
  Transmission Date: 20130627
  Serious: No
  Sender: FDA-Public Use
  Company Number: US-AMGEN-USASP2011057673

PATIENT
  Age: 82 Year
  Sex: Female
  Weight: 134 kg

DRUGS (9)
  1. ENBREL [Suspect]
     Indication: PRODUCT USED FOR UNKNOWN INDICATION
     Dosage: 50 mg, qwk
  2. FOLIC ACID [Concomitant]
     Dosage: 1000 UNK, UNK
  3. METHOTREXATE [Concomitant]
     Dosage: 20 mg, UNK
  4. LEVOTHYROXIN [Concomitant]
     Dosage: 150 UNK, UNK
  5. VERAPAMIL [Concomitant]
     Dosage: 180 mg, UNK
  6. PREDNISOLONE [Concomitant]
     Dosage: 5 mg, UNK
  7. POSTURE-D                          /00278001/ [Concomitant]
     Dosage: 600 mg, UNK
  8. CENTRUM SILVER                     /01292501/ [Concomitant]
     Dosage: UNK
  9. BACITRACIN [Concomitant]
     Dosage: UNK

REACTIONS (3)
  - Fatigue [Unknown]
  - Eye infection [Unknown]
  - Injection site erythema [Unknown]
